FAERS Safety Report 10092825 (Version 1)
Quarter: 2014Q2

REPORT INFORMATION
  Report Type: Spontaneous
  Country: US (occurrence: US)
  Receive Date: 20140421
  Receipt Date: 20140421
  Transmission Date: 20141212
  Serious: No
  Sender: FDA-Public Use
  Company Number: US-SANOFI-AVENTIS-2013SA087588

PATIENT
  Age: 15 Year
  Sex: Female
  Weight: 34.01 kg

DRUGS (2)
  1. ALLEGRA [Suspect]
     Indication: HYPERSENSITIVITY
     Dosage: TAKEN FORM: 2-3 YEARS AGO.
     Route: 048
  2. ZYRTEC [Suspect]
     Route: 065

REACTIONS (1)
  - Drug ineffective [Unknown]
